FAERS Safety Report 13333075 (Version 1)
Quarter: 2017Q1

REPORT INFORMATION
  Report Type: Spontaneous
  Country: IT (occurrence: IT)
  Receive Date: 20170313
  Receipt Date: 20170313
  Transmission Date: 20170428
  Serious: Yes (Other)
  Sender: FDA-Public Use
  Company Number: IT-ARBOR PHARMACEUTICALS, LLC-IT-2017ARB000297

PATIENT
  Age: 45 Year
  Sex: Female

DRUGS (4)
  1. CARBAMAZEPINE. [Suspect]
     Active Substance: CARBAMAZEPINE
     Indication: SELF-MEDICATION
     Dosage: UNK
  2. PIMOZIDE. [Suspect]
     Active Substance: PIMOZIDE
     Indication: SELF-MEDICATION
     Dosage: UNK
  3. ZOLPIDEM [Suspect]
     Active Substance: ZOLPIDEM\ZOLPIDEM TARTRATE
     Indication: SELF-MEDICATION
     Dosage: UNK
  4. GABAPENTIN ENACARBIL [Suspect]
     Active Substance: GABAPENTIN ENACARBIL
     Indication: SELF-MEDICATION
     Dosage: UNK

REACTIONS (4)
  - Drug interaction [Unknown]
  - Coma [Unknown]
  - Incorrect dose administered [Unknown]
  - Intentional self-injury [Unknown]
